FAERS Safety Report 7317986-8 (Version None)
Quarter: 2011Q1

REPORT INFORMATION
  Report Type: 
  Country: None (occurrence: None)
  Receive Date: 20110227
  Receipt Date: 20110201
  Transmission Date: 20110831
  Serious: No
  Sender: FDA-Public Use
  Company Number: US-B.I. PHARMACEUTICALS,INC./RIDGEFIELD-2011-BP-03220BP

PATIENT
  Age: 79 Year
  Sex: Female

DRUGS (7)
  1. PRADAXA [Suspect]
     Indication: ATRIAL FIBRILLATION
     Dosage: 300 MG
     Route: 048
     Dates: start: 20101201
  2. MAGNESIUM OXIDE [Concomitant]
     Indication: ROUTINE HEALTH MAINTENANCE
     Dosage: 400 MG
  3. PRILOSEC [Concomitant]
     Indication: GASTROOESOPHAGEAL REFLUX DISEASE
  4. AMLODIPINE BESYLATE [Concomitant]
     Indication: HYPERTENSION
     Dosage: 5 MG
  5. METHIMAZOLE [Concomitant]
     Indication: BASEDOW'S DISEASE
     Dosage: 10 MG
  6. METOPROLOL TARTRATE [Concomitant]
     Indication: CARDIAC DISORDER
  7. VASOTEC [Concomitant]
     Indication: HYPERTENSION

REACTIONS (3)
  - OROPHARYNGEAL PAIN [None]
  - THROAT IRRITATION [None]
  - CHEST PAIN [None]
